FAERS Safety Report 9741035 (Version 1)
Quarter: 2013Q4

REPORT INFORMATION
  Report Type: Spontaneous
  Country: IE (occurrence: IE)
  Receive Date: 20131209
  Receipt Date: 20131209
  Transmission Date: 20140711
  Serious: Yes (Other)
  Sender: FDA-Public Use
  Company Number: IE-PFIZER INC-2013345902

PATIENT
  Sex: Female

DRUGS (4)
  1. TOVIAZ [Suspect]
     Indication: URINARY INCONTINENCE
     Dosage: 4 MG, 1X/DAY
     Route: 048
     Dates: start: 20120530
  2. CALCICHEW-D3 [Concomitant]
     Dosage: UNK
     Route: 048
  3. EXFORGE [Concomitant]
     Dosage: UNK
  4. STEMETIL ^AVENTIS PHARMA^ [Concomitant]
     Dosage: UNK
     Route: 048

REACTIONS (4)
  - Rash [Recovered/Resolved]
  - Swelling [Recovered/Resolved]
  - Skin exfoliation [Recovered/Resolved]
  - Cellulitis [Recovered/Resolved]
